FAERS Safety Report 16614865 (Version 1)
Quarter: 2019Q3

REPORT INFORMATION
  Report Type: Spontaneous
  Country: FR (occurrence: FR)
  Receive Date: 20190723
  Receipt Date: 20190723
  Transmission Date: 20191004
  Serious: Yes (Hospitalization)
  Sender: FDA-Public Use
  Company Number: FR-TEVA-2019-FR-1080653

PATIENT
  Age: 72 Year
  Sex: Male

DRUGS (2)
  1. KETOPROFENE [Suspect]
     Active Substance: KETOPROFEN
     Indication: RENAL COLIC
     Route: 048
     Dates: start: 20190504, end: 20190514
  2. OFLOXACINE [Suspect]
     Active Substance: OFLOXACIN
     Indication: RENAL COLIC
     Dosage: 400 MILLIGRAM DAILY;
     Route: 048
     Dates: start: 20190504, end: 20190514

REACTIONS (1)
  - Hypersensitivity vasculitis [Recovering/Resolving]

NARRATIVE: CASE EVENT DATE: 20190516
